FAERS Safety Report 18319173 (Version 1)
Quarter: 2020Q3

REPORT INFORMATION
  Report Type: Spontaneous
  Country: US (occurrence: US)
  Receive Date: 20200928
  Receipt Date: 20200928
  Transmission Date: 20201103
  Serious: Yes (Death)
  Sender: FDA-Public Use
  Company Number: None

PATIENT
  Sex: Male

DRUGS (3)
  1. PROMACTA [Suspect]
     Active Substance: ELTROMBOPAG OLAMINE
     Indication: BLOOD DISORDER
     Route: 048
     Dates: start: 20200325
  2. STIMULANT TAB 8.6?50MG [Concomitant]
  3. SEVELAMER [Concomitant]
     Active Substance: SEVELAMER

REACTIONS (1)
  - Death [None]
